FAERS Safety Report 9167066 (Version 2)
Quarter: 2015Q4

REPORT INFORMATION
  Report Type: Report from Study
  Country: BR (occurrence: BR)
  Receive Date: 20130318
  Receipt Date: 20151113
  Transmission Date: 20160305
  Serious: Yes (Other)
  Sender: FDA-Public Use
  Company Number: BR-009507513-1302BRA013086

PATIENT
  Sex: Female
  Weight: 2.88 kg

DRUGS (8)
  1. ISENTRESS [Suspect]
     Active Substance: RALTEGRAVIR POTASSIUM
     Dosage: 800 MG, QD
     Route: 064
     Dates: start: 20120803, end: 20121128
  2. ZIAGEN [Suspect]
     Active Substance: ABACAVIR SULFATE
     Dosage: 600 MG, QD
     Route: 064
     Dates: start: 20120803, end: 20121128
  3. LEXIVA [Suspect]
     Active Substance: FOSAMPRENAVIR CALCIUM
     Dosage: 1400 MG, QD
     Route: 064
     Dates: start: 20120711, end: 20120803
  4. EFAVIRENZ [Suspect]
     Active Substance: EFAVIRENZ
     Indication: PRODUCT USED FOR UNKNOWN INDICATION
     Dosage: 600 MG, QD
     Route: 064
     Dates: end: 20120611
  5. TRUVADA [Suspect]
     Active Substance: EMTRICITABINE\TENOFOVIR DISOPROXIL FUMARATE
     Dosage: UNK
     Route: 064
     Dates: start: 20120521, end: 20121128
  6. LAMIVUDINE AND ZIDOVUDINE [Suspect]
     Active Substance: LAMIVUDINE\ZIDOVUDINE
     Dosage: 2 DF, UNK
     Route: 064
     Dates: end: 20120521
  7. LAMIVUDINE. [Suspect]
     Active Substance: LAMIVUDINE
     Dosage: 300 MG, QD
     Route: 064
     Dates: start: 20120512, end: 20121128
  8. RETROVIR [Suspect]
     Active Substance: ZIDOVUDINE
     Dosage: 210 MG, QD
     Route: 064
     Dates: start: 20121128, end: 20121128

REACTIONS (3)
  - Genital prolapse [Unknown]
  - Foetal exposure during pregnancy [Recovered/Resolved]
  - Diastasis recti abdominis [Unknown]

NARRATIVE: CASE EVENT DATE: 20121128
